FAERS Safety Report 19565010 (Version 6)
Quarter: 2022Q2

REPORT INFORMATION
  Report Type: Spontaneous
  Country: US (occurrence: US)
  Receive Date: 20210716
  Receipt Date: 20220609
  Transmission Date: 20220721
  Serious: Yes (Other)
  Sender: FDA-Public Use
  Company Number: US-PFIZER INC-2021753446

PATIENT
  Age: 5 Year
  Sex: Male

DRUGS (2)
  1. EUCRISA [Suspect]
     Active Substance: CRISABOROLE
     Dosage: 60 G (60G TUBE)
  2. EUCRISA [Suspect]
     Active Substance: CRISABOROLE
     Dosage: UNK (100G TUBE)

REACTIONS (3)
  - Product supply issue [Unknown]
  - Haemorrhage [Unknown]
  - Condition aggravated [Unknown]

NARRATIVE: CASE EVENT DATE: 20210101
